FAERS Safety Report 12583680 (Version 4)
Quarter: 2016Q4

REPORT INFORMATION
  Report Type: Spontaneous
  Country: US (occurrence: US)
  Receive Date: 20160722
  Receipt Date: 20161014
  Transmission Date: 20170207
  Serious: Yes (Life-Threatening, Hospitalization)
  Sender: FDA-Public Use
  Company Number: US-JNJFOC-20160716729

PATIENT
  Age: 52 Year
  Sex: Male
  Weight: 145.2 kg

DRUGS (11)
  1. TRAMADOL HYDROCHLORIDE. [Suspect]
     Active Substance: TRAMADOL HYDROCHLORIDE
     Indication: ARTHRALGIA
     Route: 048
     Dates: start: 20160208, end: 20160208
  2. EPOGEN [Interacting]
     Active Substance: ERYTHROPOIETIN
     Indication: NEPHROGENIC ANAEMIA
     Route: 042
     Dates: start: 20151226
  3. MORPHINE SULFATE. [Interacting]
     Active Substance: MORPHINE SULFATE
     Indication: ARTHRALGIA
     Route: 042
     Dates: start: 20160207, end: 20160209
  4. HYDROCODONE BITARTRATE AND ACETAMINOPHEN [Interacting]
     Active Substance: ACETAMINOPHEN\HYDROCODONE BITARTRATE
     Indication: ARTHRALGIA
     Route: 048
     Dates: start: 20160207, end: 20160207
  5. HALOPERIDOL LACTATE. [Interacting]
     Active Substance: HALOPERIDOL LACTATE
     Indication: AGITATION
     Route: 042
     Dates: start: 20160210, end: 20160210
  6. EPOGEN [Interacting]
     Active Substance: ERYTHROPOIETIN
     Indication: NEPHROGENIC ANAEMIA
     Route: 042
     Dates: start: 20151218
  7. HALOPERIDOL LACTATE. [Interacting]
     Active Substance: HALOPERIDOL LACTATE
     Indication: AGITATION
     Route: 042
     Dates: start: 20160210, end: 20160210
  8. HYDROMORPHONE HCL [Interacting]
     Active Substance: HYDROMORPHONE HYDROCHLORIDE
     Indication: ARTHRALGIA
     Route: 042
     Dates: start: 20160207, end: 20160210
  9. ALPRAZOLAM. [Interacting]
     Active Substance: ALPRAZOLAM
     Indication: AGITATION
     Route: 048
     Dates: start: 20160207, end: 20160209
  10. ATIVAN [Interacting]
     Active Substance: LORAZEPAM
     Indication: AGITATION
     Route: 042
     Dates: start: 20160209, end: 20160210
  11. IRON [Concomitant]
     Active Substance: IRON
     Indication: NEPHROGENIC ANAEMIA
     Route: 065

REACTIONS (7)
  - Osteomyelitis [Recovered/Resolved]
  - Respiratory rate decreased [Recovered/Resolved]
  - Drug interaction [Recovered/Resolved]
  - Respiratory arrest [Recovered/Resolved]
  - Pneumonia [Recovering/Resolving]
  - Tibia fracture [Recovered/Resolved]
  - Comminuted fracture [Recovered/Resolved]

NARRATIVE: CASE EVENT DATE: 201602
